FAERS Safety Report 7780204-0 (Version None)
Quarter: 2011Q3

REPORT INFORMATION
  Report Type: 
  Country: None (occurrence: None)
  Receive Date: 20110927
  Receipt Date: 20110927
  Transmission Date: 20111222
  Serious: No
  Sender: FDA-Public Use
  Company Number: None

PATIENT
  Age: 82 Year
  Sex: Female
  Weight: 63.502 kg

DRUGS (1)
  1. TRAVATAN Z [Suspect]
     Indication: GLAUCOMA
     Dosage: 1 DROP IN THE EYE
     Route: 047
     Dates: start: 20110101, end: 20110901

REACTIONS (5)
  - FOREIGN BODY SENSATION IN EYES [None]
  - OCULAR DISCOMFORT [None]
  - OCULAR HYPERAEMIA [None]
  - EYE PRURITUS [None]
  - EYE PAIN [None]
